FAERS Safety Report 7456205-9 (Version None)
Quarter: 2011Q2

REPORT INFORMATION
  Report Type: 
  Country: None (occurrence: None)
  Receive Date: 20110426
  Receipt Date: 20110411
  Transmission Date: 20111010
  Serious: Yes (Other)
  Sender: FDA-Public Use
  Company Number: 11-024-02

PATIENT
  Age: 17 Year
  Sex: Female

DRUGS (1)
  1. LEVETIRACETAM [Suspect]
     Dosage: 1500 MG;X1;PO
     Route: 048

REACTIONS (6)
  - CONVULSION [None]
  - INCORRECT DOSE ADMINISTERED [None]
  - DIZZINESS [None]
  - CONFUSIONAL STATE [None]
  - ATAXIA [None]
  - SOMNOLENCE [None]
